FAERS Safety Report 5410492-7 (Version None)
Quarter: 2007Q3

REPORT INFORMATION
  Report Type: 
  Country: None (occurrence: None)
  Receive Date: 20070810
  Receipt Date: 20070122
  Transmission Date: 20080115
  Serious: No
  Sender: FDA-Public Use
  Company Number: A0636377A

PATIENT
  Sex: Female

DRUGS (1)
  1. PAXIL [Suspect]
     Indication: CHEST PAIN
     Route: 065

REACTIONS (3)
  - ANXIETY [None]
  - DIZZINESS [None]
  - SLEEP DISORDER [None]
